FAERS Safety Report 13242898 (Version 1)
Quarter: 2017Q1

REPORT INFORMATION
  Report Type: Spontaneous
  Country: DE (occurrence: DE)
  Receive Date: 20170217
  Receipt Date: 20170217
  Transmission Date: 20170428
  Serious: Yes (Other)
  Sender: FDA-Public Use
  Company Number: DE-PFIZER INC-2017066196

PATIENT
  Sex: Female

DRUGS (1)
  1. DELIX [Suspect]
     Active Substance: RAMIPRIL
     Dosage: UNK
     Route: 048

REACTIONS (2)
  - Angioedema [Unknown]
  - Anaphylactic shock [Unknown]
